FAERS Safety Report 22101077 (Version 1)
Quarter: 2023Q1

REPORT INFORMATION
  Report Type: Spontaneous
  Country: BR (occurrence: None)
  Receive Date: 20230316
  Receipt Date: 20230316
  Transmission Date: 20230417
  Serious: Yes (Hospitalization, Other)
  Sender: FDA-Public Use
  Company Number: BR-Merck Healthcare KGaA-9388427

PATIENT
  Age: 91 Year
  Sex: Male

DRUGS (2)
  1. GLIFAGE [Suspect]
     Active Substance: METFORMIN HYDROCHLORIDE
     Indication: Type 2 diabetes mellitus
     Dosage: 1 TABLET AFTER LUNCH AND 2 TABLETS AFTER DINNER, IN TOTAL 3 TABLETS PER DAY.
     Route: 048
  2. NPH INSULIN [Suspect]
     Active Substance: INSULIN BEEF
     Indication: Type 2 diabetes mellitus

REACTIONS (9)
  - Urinary tract infection bacterial [Recovered/Resolved]
  - Dementia Alzheimer^s type [Not Recovered/Not Resolved]
  - Aphasia [Not Recovered/Not Resolved]
  - Agitation [Recovered/Resolved]
  - Wound [Not Recovered/Not Resolved]
  - Localised infection [Not Recovered/Not Resolved]
  - Benign prostatic hyperplasia [Unknown]
  - Hypoglycaemia [Unknown]
  - Product use complaint [Not Recovered/Not Resolved]
